FAERS Safety Report 15632734 (Version 3)
Quarter: 2019Q1

REPORT INFORMATION
  Report Type: Spontaneous
  Country: JP (occurrence: JP)
  Receive Date: 20181119
  Receipt Date: 20190220
  Transmission Date: 20190417
  Serious: Yes (Life-Threatening, Other)
  Sender: FDA-Public Use
  Company Number: JP-HQ SPECIALTY-JP-2018INT000230

PATIENT

DRUGS (4)
  1. DEXMEDETOMIDINE HYDROCHLORIDE. [Suspect]
     Active Substance: DEXMEDETOMIDINE HYDROCHLORIDE
     Dosage: REDUCED 5 MINUTES LATER,0.5 ?G/KG, 1 HR
     Route: 065
     Dates: start: 20131115, end: 20131115
  2. DEXMEDETOMIDINE HYDROCHLORIDE. [Suspect]
     Active Substance: DEXMEDETOMIDINE HYDROCHLORIDE
     Indication: SEDATION
     Dosage: 5 ?G/KG, 1 HR
     Route: 065
     Dates: start: 20131115, end: 20131115
  3. DEXMEDETOMIDINE HYDROCHLORIDE. [Suspect]
     Active Substance: DEXMEDETOMIDINE HYDROCHLORIDE
     Dosage: INCREASED WITHIN 2 MINUTES, 1 ?G/KG, 1 HR
     Route: 065
     Dates: start: 20141115, end: 20141115
  4. DEXMEDETOMIDINE HYDROCHLORIDE. [Suspect]
     Active Substance: DEXMEDETOMIDINE HYDROCHLORIDE
     Dosage: CONTINUOUS INFUSION,0.5 ?G/KG, 1 HR
     Route: 065
     Dates: start: 20131115, end: 20131115

REACTIONS (1)
  - Respiratory arrest [Recovered/Resolved]

NARRATIVE: CASE EVENT DATE: 20131115
